FAERS Safety Report 7007551-4 (Version None)
Quarter: 2010Q3

REPORT INFORMATION
  Report Type: 
  Country: None (occurrence: None)
  Receive Date: 20100922
  Receipt Date: 20100916
  Transmission Date: 20110219
  Serious: Yes (Life-Threatening)
  Sender: FDA-Public Use
  Company Number: IT-PFIZER INC-2010117783

PATIENT
  Age: 39 Year
  Sex: Male

DRUGS (2)
  1. CELEBREX [Suspect]
     Indication: PSORIATIC ARTHROPATHY
     Dosage: 200 MG, 1X/DAY
     Route: 048
     Dates: start: 20100715, end: 20100831
  2. SULFASALAZINE [Suspect]
     Indication: PSORIATIC ARTHROPATHY
     Dosage: 2 G, 1X/DAY
     Route: 048
     Dates: start: 20100715, end: 20100831

REACTIONS (1)
  - PANCYTOPENIA [None]
